FAERS Safety Report 9101889 (Version 4)
Quarter: 2014Q1

REPORT INFORMATION
  Report Type: Spontaneous
  Country: GB (occurrence: GB)
  Receive Date: 20130218
  Receipt Date: 20140121
  Transmission Date: 20141002
  Serious: Yes (Hospitalization, Other)
  Sender: FDA-Public Use
  Company Number: GB-TEVA-385915ISR

PATIENT
  Sex: Female

DRUGS (15)
  1. HALOPERIDOL [Suspect]
     Indication: PRODUCT USED FOR UNKNOWN INDICATION
     Dates: start: 1981
  2. DIAZEPAM [Suspect]
     Indication: PRODUCT USED FOR UNKNOWN INDICATION
  3. ISTIN [Suspect]
     Indication: PRODUCT USED FOR UNKNOWN INDICATION
  4. DISIPAL [Suspect]
     Indication: PRODUCT USED FOR UNKNOWN INDICATION
     Dates: start: 1981
  5. DEPIXOL [Suspect]
     Indication: PRODUCT USED FOR UNKNOWN INDICATION
     Dates: start: 1981
  6. VALIUM [Suspect]
     Indication: PRODUCT USED FOR UNKNOWN INDICATION
     Dates: start: 1981
  7. RELACTON-C [Suspect]
  8. KEMADRIN [Suspect]
     Indication: PRODUCT USED FOR UNKNOWN INDICATION
  9. NORMAXIN [Suspect]
  10. SURMONTIL [Suspect]
     Indication: PRODUCT USED FOR UNKNOWN INDICATION
  11. SPARINE [Suspect]
     Dates: start: 1981
  12. XOMOLIX [Suspect]
     Indication: PRODUCT USED FOR UNKNOWN INDICATION
  13. NORMISON [Suspect]
     Indication: PRODUCT USED FOR UNKNOWN INDICATION
  14. DROLEPTAN [Suspect]
  15. CHEMOTHERAPY [Suspect]
     Indication: PRODUCT USED FOR UNKNOWN INDICATION

REACTIONS (45)
  - Musculoskeletal discomfort [Not Recovered/Not Resolved]
  - Overdose [Unknown]
  - Arthralgia [Unknown]
  - Reproductive tract disorder [Unknown]
  - Intentional self-injury [Unknown]
  - Pain [Unknown]
  - Immune system disorder [Unknown]
  - Sensory disturbance [Unknown]
  - Bone erosion [Not Recovered/Not Resolved]
  - Suicide attempt [Unknown]
  - Osteoarthritis [Unknown]
  - Suicidal ideation [Unknown]
  - Feeling abnormal [Unknown]
  - Jaw disorder [Unknown]
  - Muscle atrophy [Unknown]
  - Osteochondritis [Unknown]
  - Self injurious behaviour [Unknown]
  - Victim of child abuse [Unknown]
  - Intentional drug misuse [Unknown]
  - Overdose [Unknown]
  - Self injurious behaviour [Unknown]
  - Intraocular pressure increased [Unknown]
  - Autoimmune disorder [Unknown]
  - Maternal exposure before pregnancy [Unknown]
  - Benign hydatidiform mole [Unknown]
  - Osteoarthritis [Unknown]
  - Abortion spontaneous [Unknown]
  - Chemical poisoning [Unknown]
  - Dyskinesia [Unknown]
  - Myelopathy [Unknown]
  - Disturbance in attention [Unknown]
  - Amnesia [Unknown]
  - Palpitations [Unknown]
  - Mental disorder [Unknown]
  - Movement disorder [Unknown]
  - Depression [Unknown]
  - Rheumatoid arthritis [Unknown]
  - Hallucination, visual [Unknown]
  - Intentional self-injury [Unknown]
  - Neck pain [Unknown]
  - Blindness [Unknown]
  - Joint destruction [Unknown]
  - Cytogenetic abnormality [Unknown]
  - Heart rate irregular [Unknown]
  - Myalgia [Unknown]
